FAERS Safety Report 7545260-3 (Version None)
Quarter: 2011Q2

REPORT INFORMATION
  Report Type: 
  Country: None (occurrence: None)
  Receive Date: 20110613
  Receipt Date: 20110613
  Transmission Date: 20111010
  Serious: Yes (Life-Threatening, Hospitalization)
  Sender: FDA-Public Use
  Company Number: None

PATIENT

DRUGS (1)
  1. PREDNISONE [Suspect]
     Indication: SYSTEMIC LUPUS ERYTHEMATOSUS
     Dosage: 5MG Q.D. P.O. (THIS BOTTLE OPENED AFTER 04/29/11 AND BEFORE 05/13/11
     Route: 048

REACTIONS (10)
  - NAUSEA [None]
  - CHILLS [None]
  - DEHYDRATION [None]
  - ADRENOCORTICAL INSUFFICIENCY ACUTE [None]
  - VOMITING [None]
  - SYNCOPE [None]
  - ABDOMINAL RIGIDITY [None]
  - ASTHENIA [None]
  - HYPOTENSION [None]
  - DIARRHOEA [None]
